FAERS Safety Report 20883128 (Version 1)
Quarter: 2022Q2

REPORT INFORMATION
  Report Type: Spontaneous
  Country: US (occurrence: US)
  Receive Date: 20220527
  Receipt Date: 20220527
  Transmission Date: 20220721
  Serious: Yes (Other)
  Sender: FDA-Public Use
  Company Number: US-MLMSERVICE-20220518-3565780-1

PATIENT
  Age: 65 Year
  Sex: Female

DRUGS (2)
  1. PRINIVIL [Interacting]
     Active Substance: LISINOPRIL
     Indication: Blood pressure systolic increased
     Dosage: 20MG, DAILY
     Route: 048
  2. SULFAMETHOXAZOLE\TRIMETHOPRIM [Interacting]
     Active Substance: SULFAMETHOXAZOLE\TRIMETHOPRIM
     Indication: Antibiotic therapy

REACTIONS (2)
  - Hyperkalaemia [Recovered/Resolved]
  - Drug interaction [Unknown]
